FAERS Safety Report 6640329-X (Version None)
Quarter: 2010Q1

REPORT INFORMATION
  Report Type: 
  Country: None (occurrence: None)
  Receive Date: 20100302
  Receipt Date: 20091103
  Transmission Date: 20100710
  Serious: Yes (Other)
  Sender: FDA-Public Use
  Company Number: 2009280486

PATIENT
  Age: 46 Year
  Sex: Female
  Weight: 70.7 kg

DRUGS (5)
  1. TOVIAZ [Suspect]
     Indication: URGE INCONTINENCE
     Dosage: 4 MG, 1X/DAY, ORAL
     Route: 048
     Dates: start: 20090810, end: 20090925
  2. TOPAMAX [Concomitant]
  3. PRISTIQ (DESVENLAFAXINE SUCCINATE) [Concomitant]
  4. TRAZODONE HCL [Concomitant]
  5. VALTREX [Concomitant]

REACTIONS (1)
  - VISION BLURRED [None]
